FAERS Safety Report 6277844-7 (Version None)
Quarter: 2009Q3

REPORT INFORMATION
  Report Type: 
  Country: None (occurrence: None)
  Receive Date: 20090717
  Receipt Date: 20090717
  Transmission Date: 20100115
  Serious: Yes (Life-Threatening, Hospitalization, Disabling)
  Sender: FDA-Public Use
  Company Number: None

PATIENT
  Age: 86 Year
  Sex: Male
  Weight: 89 kg

DRUGS (1)
  1. AMIODARONE HCL [Suspect]
     Indication: VENTRICULAR TACHYCARDIA
     Dosage: 150MG OVER 10 MINUTES LD ONCE IV BOLUS
     Route: 040
     Dates: start: 20090326, end: 20090326

REACTIONS (4)
  - ANGIOEDEMA [None]
  - CARDIAC ARREST [None]
  - DIZZINESS [None]
  - UNRESPONSIVE TO STIMULI [None]
